FAERS Safety Report 5419255-X (Version None)
Quarter: 2007Q3

REPORT INFORMATION
  Report Type: 
  Country: None (occurrence: None)
  Receive Date: 20070815
  Receipt Date: 20070806
  Transmission Date: 20080115
  Serious: Yes (Other)
  Sender: FDA-Public Use
  Company Number: 2007SP003040

PATIENT
  Age: 45 Year
  Sex: Male
  Weight: 81.6475 kg

DRUGS (2)
  1. PEG-INTRON [Suspect]
     Indication: HEPATITIS C
     Dosage: ; SC
     Route: 058
     Dates: start: 20070128, end: 20070501
  2. REBETOL [Suspect]
     Indication: HEPATITIS C
     Dosage: ; PO
     Route: 048
     Dates: start: 20070128, end: 20070501

REACTIONS (29)
  - ABDOMINAL PAIN [None]
  - AGITATION [None]
  - ALOPECIA [None]
  - ARTHRALGIA [None]
  - ASTHENIA [None]
  - DRUG INEFFECTIVE [None]
  - DYSGEUSIA [None]
  - FAECES DISCOLOURED [None]
  - FAECES PALE [None]
  - HAEMATOCHEZIA [None]
  - HAEMORRHAGE [None]
  - HEARING IMPAIRED [None]
  - HEPATOMEGALY [None]
  - HYPERHIDROSIS [None]
  - INJECTION SITE ERYTHEMA [None]
  - INJECTION SITE INDURATION [None]
  - INJECTION SITE IRRITATION [None]
  - INJECTION SITE PRURITUS [None]
  - INJECTION SITE REACTION [None]
  - INJECTION SITE SWELLING [None]
  - INSOMNIA [None]
  - KIDNEY INFECTION [None]
  - ORAL INTAKE REDUCED [None]
  - PAIN [None]
  - PALLOR [None]
  - PAROSMIA [None]
  - RENAL PAIN [None]
  - VISUAL ACUITY REDUCED [None]
  - WEIGHT DECREASED [None]
